FAERS Safety Report 5452768-3 (Version None)
Quarter: 2007Q3

REPORT INFORMATION
  Report Type: 
  Country: None (occurrence: None)
  Receive Date: 20070914
  Receipt Date: 20070904
  Transmission Date: 20080115
  Serious: Yes (Other)
  Sender: FDA-Public Use
  Company Number: IR-ROCHE-516097

PATIENT
  Age: 25 Year
  Sex: Male
  Weight: 64 kg

DRUGS (1)
  1. PEGASYS [Suspect]
     Indication: HEPATITIS C
     Route: 065

REACTIONS (3)
  - ABDOMINAL PAIN [None]
  - PORTAL VEIN THROMBOSIS [None]
  - SPLENIC VEIN THROMBOSIS [None]
